FAERS Safety Report 6058511-1 (Version None)
Quarter: 2009Q1

REPORT INFORMATION
  Report Type: 
  Country: None (occurrence: None)
  Receive Date: 20090128
  Receipt Date: 20090112
  Transmission Date: 20090719
  Serious: Yes (Death)
  Sender: FDA-Public Use
  Company Number: 2009S1000542

PATIENT
  Age: 60 Year
  Sex: Female

DRUGS (2)
  1. OXYCODONE HCL [Suspect]
     Indication: PAIN
     Dosage: ORAL
     Route: 048
  2. FENTANYL-100 [Suspect]
     Indication: PAIN
     Dosage: TRANSDERMAL
     Route: 062

REACTIONS (3)
  - DYSPHAGIA [None]
  - DYSPNOEA [None]
  - WRONG TECHNIQUE IN DRUG USAGE PROCESS [None]
